FAERS Safety Report 12317337 (Version 1)
Quarter: 2016Q2

REPORT INFORMATION
  Report Type: Spontaneous
  Country: None (occurrence: None)
  Receive Date: 20160428
  Receipt Date: 20160428
  Transmission Date: 20160815
  Serious: No
  Sender: FDA-Public Use
  Company Number: None

PATIENT
  Age: 68 Year
  Sex: Female

DRUGS (3)
  1. GLIPIZIDE. [Suspect]
     Active Substance: GLIPIZIDE
  2. COREG [Suspect]
     Active Substance: CARVEDILOL
  3. METFORMIN [Suspect]
     Active Substance: METFORMIN HYDROCHLORIDE

REACTIONS (8)
  - Renal disorder [None]
  - Neoplasm malignant [None]
  - Fatigue [None]
  - Blood glucose increased [None]
  - Blood glucose decreased [None]
  - Tremor [None]
  - Hyperhidrosis [None]
  - Weight decreased [None]
